FAERS Safety Report 22216249 (Version 1)
Quarter: 2023Q2

REPORT INFORMATION
  Report Type: Spontaneous
  Country: BR (occurrence: BR)
  Receive Date: 20230417
  Receipt Date: 20230417
  Transmission Date: 20230721
  Serious: Yes (Other)
  Sender: FDA-Public Use
  Company Number: BR-002147023-NVSC2023BR085588

PATIENT
  Sex: Female

DRUGS (1)
  1. ROSUVASTATIN CALCIUM [Suspect]
     Active Substance: ROSUVASTATIN CALCIUM
     Indication: Product used for unknown indication
     Dosage: 20 MG (MANUFACTURING DATE: JUN 2022)
     Route: 065

REACTIONS (4)
  - Eye haemorrhage [Unknown]
  - Eye allergy [Unknown]
  - Ocular hyperaemia [Unknown]
  - Eye swelling [Unknown]
